FAERS Safety Report 7375958-1 (Version None)
Quarter: 2011Q1

REPORT INFORMATION
  Report Type: 
  Country: None (occurrence: None)
  Receive Date: 20110325
  Receipt Date: 20110322
  Transmission Date: 20110831
  Serious: Yes (Other)
  Sender: FDA-Public Use
  Company Number: US-PFIZER INC-2005103648

PATIENT
  Sex: Male
  Weight: 149.69 kg

DRUGS (11)
  1. PROCARDIA XL [Suspect]
     Indication: HYPERTENSION
     Dosage: BID
     Route: 048
     Dates: start: 19970101
  2. ZOLOFT [Concomitant]
     Route: 048
  3. TRIAMCINOLONE [Concomitant]
     Route: 065
  4. XANAX [Concomitant]
     Route: 048
  5. NIFEDIPINE [Suspect]
     Dosage: UNK
  6. ATACAND [Concomitant]
     Route: 048
  7. PROGRAF [Suspect]
     Indication: RENAL TRANSPLANT
     Dosage: BID
     Route: 065
     Dates: start: 20030917
  8. PREDNISONE [Concomitant]
     Dosage: DAILY
     Route: 048
  9. HYDROCORTISONE [Concomitant]
     Dosage: TWICE DAILY
     Route: 048
  10. BACTROBAN [Concomitant]
     Route: 065
  11. CELLCEPT [Concomitant]
     Dosage: TWICE DAILY
     Route: 048

REACTIONS (3)
  - GLUCOSE TOLERANCE IMPAIRED [None]
  - DIABETES MELLITUS [None]
  - BLOOD PRESSURE INADEQUATELY CONTROLLED [None]
